FAERS Safety Report 6677923-6 (Version None)
Quarter: 2010Q2

REPORT INFORMATION
  Report Type: 
  Country: None (occurrence: None)
  Receive Date: 20100412
  Receipt Date: 20100402
  Transmission Date: 20101027
  Serious: Yes (Other)
  Sender: FDA-Public Use
  Company Number: US-AMGEN-QUU403577

PATIENT
  Sex: Female

DRUGS (3)
  1. ENBREL [Suspect]
     Indication: PSORIATIC ARTHROPATHY
  2. ZONISAMIDE [Concomitant]
  3. NAPROXEN [Concomitant]

REACTIONS (4)
  - HYPOCALCAEMIA [None]
  - MIGRAINE [None]
  - PROCEDURAL COMPLICATION [None]
  - VACCINATION FAILURE [None]
